FAERS Safety Report 4601784-X (Version None)
Quarter: 2005Q1

REPORT INFORMATION
  Report Type: 
  Country: None (occurrence: None)
  Receive Date: 20050128
  Receipt Date: 20040429
  Transmission Date: 20050727
  Serious: Yes (Other)
  Sender: FDA-Public Use
  Company Number: 138475USA

PATIENT
  Age: 47 Year
  Sex: Female
  Weight: 76.2043 kg

DRUGS (9)
  1. COPAXONE [Suspect]
     Indication: MULTIPLE SCLEROSIS
     Dosage: 20 MILLIGRAM QD SUBCUTANEOUS
     Route: 058
     Dates: start: 19980101
  2. METHOTREXATE [Concomitant]
  3. DETROL [Concomitant]
  4. CELEXA [Concomitant]
  5. PROVIGIL [Concomitant]
  6. CLARINEX [Concomitant]
  7. COZAAR [Concomitant]
  8. VITAMIN B-12 [Concomitant]
  9. TIZANIDINE [Concomitant]

REACTIONS (1)
  - BREAST CANCER [None]
